FAERS Safety Report 19729171 (Version 1)
Quarter: 2021Q3

REPORT INFORMATION
  Report Type: Spontaneous
  Country: JP (occurrence: JP)
  Receive Date: 20210821
  Receipt Date: 20210821
  Transmission Date: 20211014
  Serious: Yes (Hospitalization)
  Sender: FDA-Public Use
  Company Number: JP-AUROBINDO-AUR-APL-2019-048386

PATIENT
  Age: 82 Year
  Sex: Male

DRUGS (4)
  1. LEUCOVORIN. [Concomitant]
     Active Substance: LEUCOVORIN
     Indication: PRODUCT USED FOR UNKNOWN INDICATION
     Dosage: UNK
     Route: 065
  2. FOLOTYN [Suspect]
     Active Substance: PRALATREXATE
     Indication: ANGIOIMMUNOBLASTIC T-CELL LYMPHOMA STAGE III
     Dosage: 20 MG/M2, UNK
     Route: 042
     Dates: start: 201802
  3. MUNDESINE [Suspect]
     Active Substance: FORODESINE HYDROCHLORIDE
     Indication: ANGIOIMMUNOBLASTIC T-CELL LYMPHOMA STAGE III
     Dosage: UNK
     Route: 048
     Dates: start: 201712
  4. MUNDESINE [Suspect]
     Active Substance: FORODESINE HYDROCHLORIDE
     Dosage: UNK
     Route: 048
     Dates: start: 20180116, end: 20180206

REACTIONS (4)
  - Stomatitis [Unknown]
  - Insomnia [Unknown]
  - Rash [Recovered/Resolved]
  - Cytopenia [Unknown]

NARRATIVE: CASE EVENT DATE: 2018
